FAERS Safety Report 6875749-1 (Version None)
Quarter: 2010Q3

REPORT INFORMATION
  Report Type: 
  Country: None (occurrence: None)
  Receive Date: 20100727
  Receipt Date: 20100719
  Transmission Date: 20110219
  Serious: Yes (Hospitalization)
  Sender: FDA-Public Use
  Company Number: FR-TEVA-241571ISR

PATIENT
  Sex: Female

DRUGS (2)
  1. AMIODARONE HCL [Suspect]
     Indication: AGITATION
     Route: 048
     Dates: start: 20100611, end: 20100101
  2. SOTALOL HCL [Concomitant]

REACTIONS (7)
  - ASTHENIA [None]
  - DYSSTASIA [None]
  - FALL [None]
  - LOSS OF CONSCIOUSNESS [None]
  - MUSCULOSKELETAL STIFFNESS [None]
  - VOMITING [None]
  - WOUND [None]
